FAERS Safety Report 7145598-8 (Version None)
Quarter: 2010Q4

REPORT INFORMATION
  Report Type: 
  Country: None (occurrence: None)
  Receive Date: 20101123
  Receipt Date: 20101105
  Transmission Date: 20110411
  Serious: Yes (Other)
  Sender: FDA-Public Use
  Company Number: JPI-P-012932

PATIENT
  Age: 60 Year
  Sex: Female
  Weight: 101.6057 kg

DRUGS (12)
  1. XYREM [Suspect]
     Indication: CATAPLEXY
     Dosage: ORAL ; (3 GM FIRST DOSE/6 GM SECOND DOSE),ORAL
     Route: 048
     Dates: start: 20040101, end: 20050101
  2. XYREM [Suspect]
     Indication: CATAPLEXY
     Dosage: ORAL ; (3 GM FIRST DOSE/6 GM SECOND DOSE),ORAL
     Route: 048
     Dates: start: 20080101, end: 20101031
  3. ARIPIPRAZOLE [Concomitant]
  4. ESCITALOPRAM [Concomitant]
  5. DEXMETHYLPHENIDATE HCL [Concomitant]
  6. METHYLPHENIDATE [Concomitant]
  7. TRAZODONE HCL [Concomitant]
  8. TOLTERODINE TARTRATE [Concomitant]
  9. VITAMIN D [Concomitant]
  10. VITAMIN E [Concomitant]
  11. SIMVASTATIN [Concomitant]
  12. ALENDRONATE [Concomitant]

REACTIONS (5)
  - ANKLE FRACTURE [None]
  - FALL [None]
  - HALLUCINATIONS, MIXED [None]
  - LOWER LIMB FRACTURE [None]
  - MIDDLE INSOMNIA [None]
